FAERS Safety Report 9800299 (Version 2)
Quarter: 2014Q1

REPORT INFORMATION
  Report Type: Spontaneous
  Country: IT (occurrence: IT)
  Receive Date: 20140106
  Receipt Date: 20140304
  Transmission Date: 20141002
  Serious: Yes (Hospitalization)
  Sender: FDA-Public Use
  Company Number: PHHY2013IT154482

PATIENT
  Sex: Female

DRUGS (3)
  1. ATENOLOL [Suspect]
     Indication: ALCOHOLISM
     Dosage: 100 MG, QD
     Route: 048
     Dates: start: 20130101, end: 20131113
  2. ETILTOX [Interacting]
     Indication: ALCOHOLISM
     Dosage: 1 DF, QD
     Route: 048
     Dates: start: 20130801
  3. DELORAZEPAM [Concomitant]
     Route: 048

REACTIONS (4)
  - Hypothermia [Recovered/Resolved]
  - Drug interaction [Recovered/Resolved]
  - Hypotension [Recovered/Resolved]
  - Syncope [Recovered/Resolved]
